FAERS Safety Report 16253288 (Version 12)
Quarter: 2022Q3

REPORT INFORMATION
  Report Type: Spontaneous
  Country: US (occurrence: US)
  Receive Date: 20190429
  Receipt Date: 20220923
  Transmission Date: 20221026
  Serious: No
  Sender: FDA-Public Use
  Company Number: US-SA-2019SA116274

PATIENT
  Age: 81 Year
  Sex: Female

DRUGS (2)
  1. DUPIXENT [Suspect]
     Active Substance: DUPILUMAB
     Indication: Dermatitis atopic
     Dosage: 300 MG, QOW
     Route: 058
     Dates: start: 20181108
  2. DUPIXENT [Suspect]
     Active Substance: DUPILUMAB
     Dosage: 300 MG, QOW
     Route: 058
     Dates: start: 201812

REACTIONS (12)
  - Weight increased [Unknown]
  - Periorbital inflammation [Unknown]
  - Erythema [Recovering/Resolving]
  - Skin burning sensation [Recovering/Resolving]
  - Erythema of eyelid [Unknown]
  - Pruritus [Recovering/Resolving]
  - Eyelid irritation [Unknown]
  - Eye irritation [Unknown]
  - Dermatitis atopic [Unknown]
  - Eye pruritus [Unknown]
  - Eczema [Unknown]
  - Discomfort [Unknown]
